FAERS Safety Report 6301815-5 (Version None)
Quarter: 2009Q3

REPORT INFORMATION
  Report Type: 
  Country: None (occurrence: None)
  Receive Date: 20090807
  Receipt Date: 20090803
  Transmission Date: 20100115
  Serious: Yes (Life-Threatening)
  Sender: FDA-Public Use
  Company Number: FR-AVENTIS-200912857FR

PATIENT
  Age: 36 Year
  Sex: Female

DRUGS (12)
  1. RIFADIN [Suspect]
     Indication: DISSEMINATED TUBERCULOSIS
     Route: 048
     Dates: start: 20090503, end: 20090516
  2. PIRILENE [Suspect]
     Indication: DISSEMINATED TUBERCULOSIS
     Route: 048
     Dates: start: 20090425, end: 20090516
  3. IMOVANE [Suspect]
     Indication: INSOMNIA
     Route: 048
     Dates: start: 20090427, end: 20090516
  4. MYAMBUTOL [Suspect]
     Indication: DISSEMINATED TUBERCULOSIS
     Route: 048
     Dates: start: 20090425, end: 20090516
  5. BACTRIM [Suspect]
     Route: 048
     Dates: start: 20090425, end: 20090516
  6. RIMIFON [Suspect]
     Route: 048
     Dates: start: 20090425, end: 20090516
  7. SUSTIVA [Suspect]
     Route: 048
     Dates: start: 20090503, end: 20090516
  8. TRUVADA [Suspect]
     Route: 048
     Dates: start: 20090503, end: 20090516
  9. FUZEON [Suspect]
     Dates: start: 20090503, end: 20090516
  10. SINGULAIR [Suspect]
     Route: 048
     Dates: start: 20090511, end: 20090516
  11. ZECLAR [Concomitant]
     Indication: DISSEMINATED TUBERCULOSIS
     Route: 048
     Dates: start: 20090425, end: 20090503
  12. ANSATIPINE [Concomitant]
     Indication: DISSEMINATED TUBERCULOSIS
     Dates: start: 20090425, end: 20090503

REACTIONS (11)
  - CHOLESTASIS [None]
  - CYTOLYTIC HEPATITIS [None]
  - GRANULOMATOUS LIVER DISEASE [None]
  - HEPATIC ENCEPHALOPATHY [None]
  - HEPATITIS FULMINANT [None]
  - IMMUNE RECONSTITUTION SYNDROME [None]
  - INSOMNIA [None]
  - JAUNDICE [None]
  - LACTIC ACIDOSIS [None]
  - TACHYPNOEA [None]
  - TUBERCULOSIS LIVER [None]
